FAERS Safety Report 9195893 (Version 2)
Quarter: 2013Q2

REPORT INFORMATION
  Report Type: Spontaneous
  Country: US (occurrence: None)
  Receive Date: 20120703
  Receipt Date: 20121031
  Transmission Date: 20140414
  Serious: No
  Sender: FDA-Public Use
  Company Number: PHEH2012US008547

PATIENT
  Age: 48 Year
  Sex: Female

DRUGS (3)
  1. GILENYA [Suspect]
     Indication: MULTIPLE SCLEROSIS
     Route: 048
     Dates: start: 20111125, end: 20120418
  2. FAMPRIDINE (FAMPRIDINE) [Concomitant]
  3. CARBAMAZEPINE (CARBAMAZEPINE) [Concomitant]

REACTIONS (1)
  - Palpitations [None]
